FAERS Safety Report 14244544 (Version 2)
Quarter: 2017Q4

REPORT INFORMATION
  Report Type: Spontaneous
  Country: US (occurrence: US)
  Receive Date: 20171201
  Receipt Date: 20171208
  Transmission Date: 20180321
  Serious: Yes (Other)
  Sender: FDA-Public Use
  Company Number: US-DUCHESNAY INC.-2036481

PATIENT
  Age: 51 Year
  Sex: Female

DRUGS (2)
  1. OSPHENA [Suspect]
     Active Substance: OSPEMIFENE
     Indication: ATROPHIC VULVOVAGINITIS
     Dates: start: 20170903, end: 20171128
  2. MUPIROCIN. [Concomitant]
     Active Substance: MUPIROCIN
     Route: 065

REACTIONS (3)
  - Contraindicated product administered [Unknown]
  - Endometrial adenocarcinoma [Not Recovered/Not Resolved]
  - Product use in unapproved indication [Unknown]

NARRATIVE: CASE EVENT DATE: 20171115
